FAERS Safety Report 25177090 (Version 2)
Quarter: 2025Q3

REPORT INFORMATION
  Report Type: Spontaneous
  Country: EU (occurrence: EU)
  Receive Date: 20250409
  Receipt Date: 20250716
  Transmission Date: 20251020
  Serious: Yes (Other)
  Sender: TAKEDA
  Company Number: EU-TAKEDA-2025TUS032482

PATIENT
  Age: 39 Year
  Sex: Male

DRUGS (9)
  1. SUSOCTOCOG ALFA [Suspect]
     Active Substance: SUSOCTOCOG ALFA
     Indication: Acquired haemophilia
  2. DEXAMETHASONE [Concomitant]
     Active Substance: DEXAMETHASONE
  3. CYCLOPHOSPHAMIDE [Concomitant]
     Active Substance: CYCLOPHOSPHAMIDE
  4. RITUXIMAB [Concomitant]
     Active Substance: RITUXIMAB
  5. EMICIZUMAB [Concomitant]
     Active Substance: EMICIZUMAB
     Indication: Haemorrhage prophylaxis
  6. MYCOPHENOLATE MOFETIL [Concomitant]
     Active Substance: MYCOPHENOLATE MOFETIL
  7. CYCLOSPORINE [Concomitant]
     Active Substance: CYCLOSPORINE
  8. TOLODODEKIN ALFA [Concomitant]
     Active Substance: TOLODODEKIN ALFA
  9. FLUDARABINE [Concomitant]
     Active Substance: FLUDARABINE PHOSPHATE

REACTIONS (1)
  - Drug ineffective [Unknown]
